FAERS Safety Report 8774181 (Version 2)
Quarter: 2012Q4

REPORT INFORMATION
  Report Type: 
  Country: AU (occurrence: AU)
  Receive Date: 20120907
  Receipt Date: 20120927
  Transmission Date: 20130627
  Serious: Yes (Other)
  Sender: FDA-Public Use
  Company Number: PHHY2012AU077968

PATIENT
  Age: 61 Year
  Sex: Male

DRUGS (8)
  1. ACLASTA [Suspect]
     Dosage: 5 mg, UNK
     Route: 042
     Dates: start: 20120718
  2. ASPIRIN [Concomitant]
     Route: 048
  3. CRESTOR [Concomitant]
     Route: 048
  4. DUODART [Concomitant]
     Route: 048
  5. IMURAN [Concomitant]
     Route: 048
  6. KARVEZIDE [Concomitant]
     Route: 048
  7. PREDNISOLONE [Concomitant]
     Dosage: 45 mg,
     Route: 048
  8. PARIET [Concomitant]
     Dosage: 20 mg,
     Route: 048

REACTIONS (7)
  - Osteoarthritis [Unknown]
  - Arthralgia [Unknown]
  - Exostosis [Unknown]
  - Hernia [Unknown]
  - Bone loss [Unknown]
  - Jaw disorder [Not Recovered/Not Resolved]
  - Oral disorder [Unknown]
